FAERS Safety Report 12905063 (Version 2)
Quarter: 2016Q4

REPORT INFORMATION
  Report Type: Report from Study
  Country: US (occurrence: US)
  Receive Date: 20161102
  Receipt Date: 20161107
  Transmission Date: 20170207
  Serious: Yes (Hospitalization, Other)
  Sender: FDA-Public Use
  Company Number: US-GILEAD-2016-0241039

PATIENT
  Age: 73 Year
  Sex: Male

DRUGS (1)
  1. RANOLAZINE [Suspect]
     Active Substance: RANOLAZINE
     Indication: ANGINA PECTORIS
     Dosage: 500 MG, UNK
     Route: 048

REACTIONS (22)
  - Cardiac failure congestive [Unknown]
  - Implantable defibrillator insertion [Unknown]
  - Blood pressure abnormal [Unknown]
  - Malaise [Unknown]
  - Myocardial ischaemia [Unknown]
  - Stent placement [Unknown]
  - Coronary artery disease [Unknown]
  - Arrhythmia [Unknown]
  - Ventricular extrasystoles [Unknown]
  - Cardiac ventricular thrombosis [Unknown]
  - Coronary artery bypass [Unknown]
  - Disability [Unknown]
  - Musculoskeletal pain [Unknown]
  - Dyspnoea [Unknown]
  - Myocardial infarction [Unknown]
  - Angioplasty [Unknown]
  - Dysphonia [Unknown]
  - Cardiac operation [Unknown]
  - Hypoacusis [Unknown]
  - Chest pain [Unknown]
  - Gait disturbance [Unknown]
  - Catheterisation cardiac [Unknown]

NARRATIVE: CASE EVENT DATE: 201306
